FAERS Safety Report 17067726 (Version 1)
Quarter: 2019Q4

REPORT INFORMATION
  Report Type: Report from Study
  Country: US (occurrence: US)
  Receive Date: 20191122
  Receipt Date: 20191122
  Transmission Date: 20200122
  Serious: Yes (Life-Threatening, Hospitalization)
  Sender: FDA-Public Use
  Company Number: PHHO2019US009745

PATIENT
  Sex: Female

DRUGS (7)
  1. CARBOPLATIN FOR INJECTION [Suspect]
     Active Substance: CARBOPLATIN
     Dosage: DECREASED ONE DOSE LEVEL
     Route: 042
     Dates: start: 20191001
  2. INC424A [Suspect]
     Active Substance: RUXOLITINIB
     Indication: OVARIAN EPITHELIAL CANCER
     Dosage: UNK
     Route: 048
     Dates: start: 20190910, end: 20190930
  3. CARBOPLATIN FOR INJECTION [Suspect]
     Active Substance: CARBOPLATIN
     Indication: OVARIAN EPITHELIAL CANCER
     Dosage: UNK
     Route: 042
     Dates: start: 20190910, end: 20190910
  4. INC424A [Suspect]
     Active Substance: RUXOLITINIB
     Dosage: REDUCED BY 1 DOSE LEVEL PER PROTOCO
     Route: 048
     Dates: start: 20191001, end: 201910
  5. PACLITAXEL. [Suspect]
     Active Substance: PACLITAXEL
     Indication: OVARIAN EPITHELIAL CANCER
     Dosage: UNK
     Route: 042
     Dates: start: 20190910, end: 20190917
  6. INC424A [Suspect]
     Active Substance: RUXOLITINIB
     Dosage: FURTHER REDUCED BY 1 DOSE LEVEL PER PROTOCOL
     Route: 048
     Dates: start: 201910
  7. PACLITAXEL. [Suspect]
     Active Substance: PACLITAXEL
     Dosage: UNK
     Route: 042
     Dates: start: 20191001, end: 20191008

REACTIONS (3)
  - Neutropenia [Recovered/Resolved]
  - Neutrophil count decreased [Recovering/Resolving]
  - Syncope [Recovering/Resolving]

NARRATIVE: CASE EVENT DATE: 20190924
